FAERS Safety Report 5753829-1 (Version None)
Quarter: 2008Q2

REPORT INFORMATION
  Report Type: 
  Country: None (occurrence: None)
  Receive Date: 20080527
  Receipt Date: 20080527
  Transmission Date: 20081010
  Serious: Yes (Other)
  Sender: FDA-Public Use
  Company Number: None

PATIENT
  Sex: Female
  Weight: 63.5036 kg

DRUGS (1)
  1. HYDROXYCHLOROQUINE 200 MG WATSON [Suspect]
     Indication: RASH
     Dosage: 1 TABLET TWICE A DAY
     Dates: start: 20080408, end: 20080508

REACTIONS (1)
  - ALOPECIA [None]
